FAERS Safety Report 23555074 (Version 1)
Quarter: 2024Q1

REPORT INFORMATION
  Report Type: Spontaneous
  Country: FR (occurrence: FR)
  Receive Date: 20240222
  Receipt Date: 20240222
  Transmission Date: 20240410
  Serious: Yes (Hospitalization)
  Sender: FDA-Public Use
  Company Number: FR-ELI_LILLY_AND_COMPANY-FR202402007447

PATIENT
  Age: 42 Year
  Sex: Male

DRUGS (2)
  1. EMGALITY [Suspect]
     Active Substance: GALCANEZUMAB-GNLM
     Indication: Migraine prophylaxis
     Dosage: 120 MG, OTHER (ONCE EVERY TWO AND HALF MONTH)
     Route: 065
  2. RIMEGEPANT [Concomitant]
     Active Substance: RIMEGEPANT
     Indication: Migraine
     Dosage: 75 MG, UNKNOWN
     Route: 065

REACTIONS (3)
  - Meningitis [Unknown]
  - Migraine [Unknown]
  - Inappropriate schedule of product administration [Unknown]
